FAERS Safety Report 9837148 (Version 1)
Quarter: 2013Q4

REPORT INFORMATION
  Report Type: Spontaneous
  Country: US (occurrence: None)
  Receive Date: 20131205
  Receipt Date: 20131205
  Transmission Date: 20140711
  Serious: Yes (Other)
  Sender: FDA-Public Use
  Company Number: 163-POMAL-13091270

PATIENT
  Age: 65 Year
  Sex: Female

DRUGS (1)
  1. POMALYST (POMALIDOMIDE) (4 MILLIGRAM, CAPSULES) [Suspect]
     Indication: PLASMA CELL MYELOMA
     Dosage: 4MG, 1 IN 1 D, PO
     Route: 048
     Dates: start: 201303

REACTIONS (2)
  - No therapeutic response [None]
  - Full blood count increased [None]
